FAERS Safety Report 5659304-7 (Version None)
Quarter: 2008Q1

REPORT INFORMATION
  Report Type: 
  Country: None (occurrence: None)
  Receive Date: 20080311
  Receipt Date: 20070622
  Transmission Date: 20080703
  Serious: No
  Sender: FDA-Public Use
  Company Number: US-BAYER-200712008BCC

PATIENT
  Sex: Female
  Weight: 57 kg

DRUGS (3)
  1. ALEVE [Suspect]
     Indication: ARTHRITIS
     Dosage: TOTAL DAILY DOSE: 440 MG  UNIT DOSE: 220 MG
     Route: 048
  2. HIGH BLOOD PRESSURE MEDICATION [Concomitant]
  3. HIGH CHOLESTEROL MEDICATION [Concomitant]

REACTIONS (1)
  - ARTHRITIS [None]
